FAERS Safety Report 4758467-5 (Version None)
Quarter: 2005Q3

REPORT INFORMATION
  Report Type: 
  Country: None (occurrence: None)
  Receive Date: 20050901
  Receipt Date: 20050825
  Transmission Date: 20060218
  Serious: Yes (Other)
  Sender: FDA-Public Use
  Company Number: FR-JNJFOC-20050806058

PATIENT
  Age: 30 Year
  Sex: Female

DRUGS (2)
  1. REMICADE [Suspect]
     Indication: CROHN'S DISEASE
     Dosage: 3 INFUSIONS TO DATE
     Route: 042
  2. IMUREL [Suspect]
     Indication: CROHN'S DISEASE

REACTIONS (2)
  - CYTOLYTIC HEPATITIS [None]
  - PARAESTHESIA [None]
